FAERS Safety Report 4847546-X (Version None)
Quarter: 2005Q4

REPORT INFORMATION
  Report Type: 
  Country: None (occurrence: None)
  Receive Date: 20051205
  Receipt Date: 20051121
  Transmission Date: 20060501
  Serious: No
  Sender: FDA-Public Use
  Company Number: 02100-JPN-05-0558

PATIENT
  Age: 75 Year
  Sex: Female

DRUGS (3)
  1. CILOSTAZOL [Suspect]
     Route: 048
  2. WARFARIN POTASSIUM [Concomitant]
  3. HEPARIN SODIUM [Concomitant]

REACTIONS (5)
  - ARTERIAL INJURY [None]
  - CONTUSION [None]
  - LIMB INJURY [None]
  - SKIN ULCER [None]
  - SUBCUTANEOUS HAEMATOMA [None]
